FAERS Safety Report 5139706-8 (Version None)
Quarter: 2006Q4

REPORT INFORMATION
  Report Type: 
  Country: None (occurrence: None)
  Receive Date: 20061030
  Receipt Date: 20061020
  Transmission Date: 20070319
  Serious: Yes (Other)
  Sender: FDA-Public Use
  Company Number: CA-ABBOTT-06P-028-0347653-00

PATIENT
  Sex: Female

DRUGS (1)
  1. MAVIK [Suspect]
     Indication: DRUG USE FOR UNKNOWN INDICATION
     Route: 048
     Dates: start: 20060301

REACTIONS (2)
  - ARTHRITIS [None]
  - SYSTEMIC LUPUS ERYTHEMATOSUS [None]
